FAERS Safety Report 7752615-0 (Version None)
Quarter: 2011Q3

REPORT INFORMATION
  Report Type: 
  Country: None (occurrence: None)
  Receive Date: 20110915
  Receipt Date: 20110912
  Transmission Date: 20111222
  Serious: Yes (Hospitalization)
  Sender: FDA-Public Use
  Company Number: FR-SANOFI-AVENTIS-2011SA059511

PATIENT
  Age: 48 Year
  Sex: Female

DRUGS (5)
  1. ZOLPIDEM [Suspect]
     Route: 048
     Dates: start: 20110805, end: 20110805
  2. ZOLPIDEM [Suspect]
  3. PRAZEPAM [Suspect]
     Route: 048
     Dates: start: 20110805, end: 20110805
  4. PRAZEPAM [Suspect]
  5. HALDOL [Concomitant]

REACTIONS (3)
  - PNEUMONIA ASPIRATION [None]
  - MULTIPLE DRUG OVERDOSE INTENTIONAL [None]
  - SUICIDE ATTEMPT [None]
